FAERS Safety Report 12709464 (Version 1)
Quarter: 2016Q3

REPORT INFORMATION
  Report Type: Spontaneous
  Country: US (occurrence: None)
  Receive Date: 20160901
  Receipt Date: 20160901
  Transmission Date: 20161109
  Serious: No
  Sender: FDA-Public Use
  Company Number: None

PATIENT
  Age: 23 Year
  Sex: Female

DRUGS (1)
  1. OMNIPAQUE [Suspect]
     Active Substance: IOHEXOL

REACTIONS (5)
  - Dyspnoea [None]
  - Similar reaction on previous exposure to drug [None]
  - Pruritus [None]
  - Swollen tongue [None]
  - Contrast media reaction [None]

NARRATIVE: CASE EVENT DATE: 20160830
